FAERS Safety Report 6104118-7 (Version None)
Quarter: 2009Q1

REPORT INFORMATION
  Report Type: 
  Country: None (occurrence: None)
  Receive Date: 20090305
  Receipt Date: 20090302
  Transmission Date: 20090719
  Serious: Yes (Death, Hospitalization)
  Sender: FDA-Public Use
  Company Number: PHHY2009GB03722

PATIENT
  Sex: Male

DRUGS (4)
  1. CLOZARIL [Suspect]
     Indication: SCHIZOPHRENIA
     Dosage: UNK
     Route: 048
     Dates: start: 20060731
  2. OMEPRAZOLE [Concomitant]
     Indication: REFLUX OESOPHAGITIS
     Dosage: 20 MG
     Dates: end: 20090101
  3. VENLAFAXINE HCL [Concomitant]
     Indication: DEPRESSION
     Dosage: 150 MG DAILY
     Route: 048
     Dates: start: 20060601, end: 20090101
  4. GAVISCON [Concomitant]
     Indication: REFLUX OESOPHAGITIS
     Dosage: 30 ML DAILY

REACTIONS (8)
  - CARDIAC FAILURE [None]
  - GASTROINTESTINAL ISCHAEMIA [None]
  - LOWER RESPIRATORY TRACT INFECTION [None]
  - MECHANICAL VENTILATION [None]
  - MULTI-ORGAN FAILURE [None]
  - PNEUMONIA [None]
  - RENAL FAILURE [None]
  - SEPSIS [None]
